FAERS Safety Report 15138616 (Version 5)
Quarter: 2018Q3

REPORT INFORMATION
  Report Type: Report from Study
  Country: CA (occurrence: CA)
  Receive Date: 20180713
  Receipt Date: 20180918
  Transmission Date: 20181010
  Serious: Yes (Hospitalization, Other)
  Sender: FDA-Public Use
  Company Number: CA-BRISTOL-MYERS SQUIBB COMPANY-BMS-2017-043997

PATIENT
  Age: 53 Year
  Sex: Female

DRUGS (3)
  1. ABATACEPT [Suspect]
     Active Substance: ABATACEPT
     Indication: RHEUMATOID ARTHRITIS
     Dosage: 750 MG, Q4WK
     Route: 042
     Dates: start: 20101124
  2. ABATACEPT [Suspect]
     Active Substance: ABATACEPT
     Indication: PRODUCT USED FOR UNKNOWN INDICATION
     Dosage: 750 MG, Q4WK
     Route: 042
     Dates: start: 20170516, end: 20170516
  3. METHOTREXATE. [Suspect]
     Active Substance: METHOTREXATE
     Indication: PRODUCT USED FOR UNKNOWN INDICATION
     Route: 065

REACTIONS (23)
  - Endodontic procedure [Recovered/Resolved]
  - Headache [Unknown]
  - Tooth abscess [Recovered/Resolved]
  - Fatigue [Unknown]
  - Pain [Unknown]
  - Hepatic mass [Not Recovered/Not Resolved]
  - Liver disorder [Unknown]
  - Adverse event [Unknown]
  - Nodule [Not Recovered/Not Resolved]
  - Pulmonary mass [Not Recovered/Not Resolved]
  - Diverticulitis [Not Recovered/Not Resolved]
  - Skin disorder [Recovering/Resolving]
  - Inflammation [Unknown]
  - Skin haemorrhage [Unknown]
  - Toothache [Not Recovered/Not Resolved]
  - Contusion [Unknown]
  - Rheumatoid nodule [Unknown]
  - Cholelithiasis [Unknown]
  - Poor venous access [Not Recovered/Not Resolved]
  - Lung disorder [Not Recovered/Not Resolved]
  - Hepatic steatosis [Unknown]
  - Skin injury [Unknown]
  - Musculoskeletal stiffness [Unknown]

NARRATIVE: CASE EVENT DATE: 20170516
